FAERS Safety Report 9014490 (Version 2)
Quarter: 2013Q1

REPORT INFORMATION
  Report Type: Spontaneous
  Country: US (occurrence: US)
  Receive Date: 20130115
  Receipt Date: 20130208
  Transmission Date: 20140127
  Serious: No
  Sender: FDA-Public Use
  Company Number: US-PFIZER INC-2013016050

PATIENT
  Age: 55 Year
  Sex: Female

DRUGS (1)
  1. SUTENT [Suspect]
     Indication: NEUROENDOCRINE TUMOUR
     Dosage: 37.5 MG, 1X/DAY

REACTIONS (2)
  - Disease progression [Unknown]
  - Neuroendocrine tumour [Unknown]
